FAERS Safety Report 22012677 (Version 1)
Quarter: 2023Q1

REPORT INFORMATION
  Report Type: Spontaneous
  Country: US (occurrence: US)
  Receive Date: 20230220
  Receipt Date: 20230220
  Transmission Date: 20230418
  Serious: No
  Sender: FDA-Public Use
  Company Number: US-BAYER-2023A012178

PATIENT
  Age: 67 Year
  Sex: Male

DRUGS (1)
  1. MIRALAX [Suspect]
     Active Substance: POLYETHYLENE GLYCOL 3350
     Indication: Colonoscopy
     Dosage: HALF DOSE THIS 2 PM HALF IN THE MORNING WITH 32 OZ EACH OF GATORADE DOSE
     Route: 048
     Dates: start: 20230130, end: 20230130

REACTIONS (2)
  - Off label use [None]
  - Product prescribing issue [None]

NARRATIVE: CASE EVENT DATE: 20230130
